FAERS Safety Report 4513945-9 (Version None)
Quarter: 2004Q4

REPORT INFORMATION
  Report Type: 
  Country: None (occurrence: None)
  Receive Date: 20041124
  Receipt Date: 20041116
  Transmission Date: 20050328
  Serious: Yes (Other)
  Sender: FDA-Public Use
  Company Number: DE_041114666

PATIENT
  Age: 56 Year
  Sex: Female
  Weight: 84 kg

DRUGS (3)
  1. YENTREVE (DULOXETINE HYDROCHLORIDE) [Suspect]
     Indication: STRESS SYMPTOMS
     Dosage: 20 MG/2 DAY
     Dates: start: 20041019, end: 20041001
  2. YENTREVE (DULOXETINE HYDROCHLORIDE) [Suspect]
     Indication: URINARY INCONTINENCE
     Dosage: 20 MG/2 DAY
     Dates: start: 20041019, end: 20041001
  3. LEVOTHYROXINE SODIUM [Concomitant]

REACTIONS (4)
  - AMNESIA [None]
  - CIRCULATORY COLLAPSE [None]
  - FALL [None]
  - SYNCOPE [None]
